FAERS Safety Report 4816570-5 (Version None)
Quarter: 2005Q4

REPORT INFORMATION
  Report Type: 
  Country: None (occurrence: None)
  Receive Date: 20051031
  Receipt Date: 20051031
  Transmission Date: 20060501
  Serious: Yes (Other)
  Sender: FDA-Public Use
  Company Number: None

PATIENT
  Sex: Female
  Weight: 12.1 kg

DRUGS (1)
  1. AMOXICILLIN [Suspect]
     Indication: OTITIS MEDIA ACUTE
     Dosage: 1.5 TEASPOONS BID PO
     Route: 048
     Dates: start: 20051027, end: 20051028

REACTIONS (2)
  - RASH [None]
  - SWELLING FACE [None]
